FAERS Safety Report 9789749 (Version 2)
Quarter: 2014Q1

REPORT INFORMATION
  Report Type: Spontaneous
  Country: US (occurrence: US)
  Receive Date: 20131231
  Receipt Date: 20140227
  Transmission Date: 20141002
  Serious: No
  Sender: FDA-Public Use
  Company Number: US-PFIZER INC-2013371292

PATIENT
  Age: 88 Year
  Sex: Female
  Weight: 49.89 kg

DRUGS (3)
  1. NITROSTAT [Suspect]
     Indication: ANGINA PECTORIS
     Dosage: 0.4 MG, (UPTO 3 TABLETS IN A DAY) AS NEEDED
     Route: 060
     Dates: start: 20110711
  2. METOPROLOL [Concomitant]
     Indication: HYPERTENSION
     Dosage: 25 MG (BY CUTTING 50MG INTO HALF), 2X/DAY
  3. FUROSEMIDE [Concomitant]
     Indication: OEDEMA
     Dosage: 20 MG, 1X/DAY

REACTIONS (4)
  - Flushing [Recovered/Resolved]
  - Headache [Recovered/Resolved]
  - Feeling abnormal [Recovered/Resolved]
  - Drug ineffective [Unknown]
